FAERS Safety Report 24630416 (Version 1)
Quarter: 2024Q4

REPORT INFORMATION
  Report Type: Spontaneous
  Country: US (occurrence: US)
  Receive Date: 20241118
  Receipt Date: 20241118
  Transmission Date: 20250115
  Serious: No
  Sender: SPECGX
  Company Number: US-SPECGX-T202401702

PATIENT
  Sex: Male

DRUGS (2)
  1. DEXTROAMPHETAMINE SACCHARATE, AMPHETAMINE ASPARTATE, DEXTROAMPHETAMINE [Suspect]
     Active Substance: AMPHETAMINE ASPARTATE\AMPHETAMINE SULFATE\DEXTROAMPHETAMINE SACCHARATE\DEXTROAMPHETAMINE SULFATE
     Indication: Attention deficit hyperactivity disorder
     Dosage: 30 MILLIGRAM, BID
     Route: 065
     Dates: start: 202405
  2. DEXTROAMPHETAMINE SACCHARATE, AMPHETAMINE ASPARTATE, DEXTROAMPHETAMINE [Suspect]
     Active Substance: AMPHETAMINE ASPARTATE\AMPHETAMINE SULFATE\DEXTROAMPHETAMINE SACCHARATE\DEXTROAMPHETAMINE SULFATE
     Dosage: 30 MILLIGRAM, BID (NOT TAKING MEDICATION AS MUCH/ THERE WERE OCCASIONAL DAYS WHERE HE HAD TO TAKE 2
     Route: 065
     Dates: start: 20240610

REACTIONS (14)
  - Malaise [Not Recovered/Not Resolved]
  - Brain fog [Not Recovered/Not Resolved]
  - Skin wrinkling [Not Recovered/Not Resolved]
  - Influenza like illness [Not Recovered/Not Resolved]
  - White blood cell count increased [Unknown]
  - Blood test abnormal [Unknown]
  - Fatigue [Not Recovered/Not Resolved]
  - Pain [Not Recovered/Not Resolved]
  - Product physical issue [Unknown]
  - Product taste abnormal [Unknown]
  - Product odour abnormal [Unknown]
  - Adulterated product [Unknown]
  - Inappropriate schedule of product administration [Unknown]
  - Drug ineffective [Unknown]

NARRATIVE: CASE EVENT DATE: 20240101
